FAERS Safety Report 10016265 (Version 2)
Quarter: 2014Q1

REPORT INFORMATION
  Report Type: Spontaneous
  Country: ZA (occurrence: ZA)
  Receive Date: 20140317
  Receipt Date: 20140328
  Transmission Date: 20141002
  Serious: Yes (Death)
  Sender: FDA-Public Use
  Company Number: ZA-ABBVIE-14P-143-1213358-00

PATIENT
  Age: 66 Year
  Sex: Female
  Weight: 58 kg

DRUGS (4)
  1. HUMIRA [Suspect]
     Indication: RHEUMATOID ARTHRITIS
     Route: 058
     Dates: start: 2010, end: 201401
  2. ARAVA [Concomitant]
     Indication: RHEUMATOID ARTHRITIS
     Route: 048
     Dates: start: 20120227, end: 201402
  3. ALZAM [Concomitant]
     Indication: ANXIETY
     Route: 048
     Dates: start: 20111020, end: 201402
  4. STILPANE [Concomitant]
     Indication: RHEUMATOID ARTHRITIS
     Route: 048
     Dates: start: 20131025, end: 201402

REACTIONS (6)
  - Cardiac arrest [Fatal]
  - Aspiration [Fatal]
  - Pneumonia [Fatal]
  - Systemic inflammatory response syndrome [Fatal]
  - Post-anoxic myoclonus [Fatal]
  - Cerebral ischaemia [Fatal]
